FAERS Safety Report 12089944 (Version 2)
Quarter: 2016Q1

REPORT INFORMATION
  Report Type: Spontaneous
  Country: US (occurrence: US)
  Receive Date: 20160218
  Receipt Date: 20160330
  Transmission Date: 20160526
  Serious: Yes (Other)
  Sender: FDA-Public Use
  Company Number: PHEH2016US003370

PATIENT
  Age: 44 Year
  Sex: Female
  Weight: 200 kg

DRUGS (2)
  1. COSENTYX [Suspect]
     Active Substance: SECUKINUMAB
     Indication: PSORIASIS
     Dosage: 300 MG, QMO (2 PEN PER MONTH)
     Route: 058
     Dates: start: 20150921, end: 20160210
  2. IBUPROFEN. [Concomitant]
     Active Substance: IBUPROFEN
     Indication: PAIN
     Dosage: 1 DF, PRN, TID AS NEEDED FOR PAIN
     Route: 048
     Dates: start: 20160108

REACTIONS (3)
  - Inappropriate schedule of drug administration [Unknown]
  - Tuberculosis [Unknown]
  - Incorrect dose administered [Unknown]

NARRATIVE: CASE EVENT DATE: 20160210
